FAERS Safety Report 7569607-7 (Version None)
Quarter: 2011Q2

REPORT INFORMATION
  Report Type: 
  Country: None (occurrence: None)
  Receive Date: 20110617
  Receipt Date: 20110602
  Transmission Date: 20111010
  Serious: Yes (Other)
  Sender: FDA-Public Use
  Company Number: 944020

PATIENT
  Age: 67 Year
  Sex: Female
  Weight: 73.8 kg

DRUGS (10)
  1. HERCEPTIN [Suspect]
     Indication: BREAST CANCER
     Dosage: 441 MG MILLIGRAM(S), 21 DAY, INTRAVENOUS DRIP; 588 MG MILLIGRAM(S), 21 DAY, INTRAVENOUS DRIP
     Route: 041
     Dates: start: 20110215
  2. HERCEPTIN [Suspect]
     Indication: BREAST CANCER
     Dosage: 441 MG MILLIGRAM(S), 21 DAY, INTRAVENOUS DRIP; 588 MG MILLIGRAM(S), 21 DAY, INTRAVENOUS DRIP
     Route: 041
     Dates: start: 20110309
  3. EPIRUBICIN [Concomitant]
  4. (PEGFILGRASTIM) [Concomitant]
  5. DEXAMETHASONE [Concomitant]
  6. FLUCONAZOLE [Concomitant]
  7. DOCETAXEL [Suspect]
     Indication: BREAST CANCER
     Dosage: 170 MG MILLIGRAM(S), 21 DAY, INTRAVENOUS DRIP
     Route: 041
     Dates: start: 20110216
  8. CYCLOPHOSPHAMIDE [Concomitant]
  9. FLUOROURACIL [Concomitant]
  10. (RATIOGRASTIM) [Concomitant]

REACTIONS (9)
  - SKIN EXFOLIATION [None]
  - OEDEMA PERIPHERAL [None]
  - EYE DISCHARGE [None]
  - MYALGIA [None]
  - DRUG HYPERSENSITIVITY [None]
  - CANDIDIASIS [None]
  - SWELLING FACE [None]
  - RASH [None]
  - NEUTROPENIC SEPSIS [None]
